FAERS Safety Report 4717082-X (Version None)
Quarter: 2005Q3

REPORT INFORMATION
  Report Type: 
  Country: None (occurrence: None)
  Receive Date: 20050719
  Receipt Date: 20050712
  Transmission Date: 20060218
  Serious: Yes (Death)
  Sender: FDA-Public Use
  Company Number: PHBS2005SV10001

PATIENT
  Age: 9 Year
  Sex: Female

DRUGS (3)
  1. PENTREXYL [Concomitant]
  2. METOCLOPRAMIDE [Concomitant]
  3. CATAFLAM [Suspect]
     Indication: POSTOPERATIVE ANALGESIA
     Dosage: 37 MG, Q8H
     Route: 030
     Dates: start: 20050527, end: 20050528

REACTIONS (2)
  - ANAPHYLACTIC REACTION [None]
  - LARYNGEAL OEDEMA [None]
